FAERS Safety Report 23557671 (Version 1)
Quarter: 2024Q1

REPORT INFORMATION
  Report Type: Report from Study
  Country: US (occurrence: US)
  Receive Date: 20240223
  Receipt Date: 20240223
  Transmission Date: 20240410
  Serious: Yes (Other)
  Sender: FDA-Public Use
  Company Number: US-SANDOZ-NVSC2023US148981

PATIENT
  Sex: Female

DRUGS (4)
  1. ATENOLOL [Suspect]
     Active Substance: ATENOLOL
     Indication: Psoriasis
     Dosage: UNK
     Route: 065
  2. BUPROPION [Suspect]
     Active Substance: BUPROPION
     Indication: Psoriasis
     Dosage: UNK
     Route: 065
  3. CLOBETASOL [Suspect]
     Active Substance: CLOBETASOL
     Indication: Psoriasis
     Dosage: UNK
     Route: 065
  4. DESONIDE [Suspect]
     Active Substance: DESONIDE
     Indication: Psoriasis
     Dosage: UNK
     Route: 065

REACTIONS (13)
  - Psoriasis [Unknown]
  - Pruritus [Unknown]
  - Blood glucose increased [Unknown]
  - Drug ineffective [Unknown]
  - Burning sensation [Unknown]
  - Erythema [Unknown]
  - Blood chloride decreased [Unknown]
  - Urine analysis abnormal [Unknown]
  - Occult blood [Unknown]
  - Skin haemorrhage [Unknown]
  - Pain of skin [Unknown]
  - Skin plaque [Unknown]
  - Skin fissures [Unknown]
